FAERS Safety Report 5529021-2 (Version None)
Quarter: 2007Q4

REPORT INFORMATION
  Report Type: 
  Country: None (occurrence: None)
  Receive Date: 20071129
  Receipt Date: 20071122
  Transmission Date: 20080405
  Serious: Yes (Other)
  Sender: FDA-Public Use
  Company Number: AU-AVENTIS-200720817GDDC

PATIENT
  Age: 65 Year
  Sex: Male

DRUGS (3)
  1. LANTUS [Suspect]
     Route: 058
     Dates: start: 20061101
  2. AUTOPEN INSULIN INJECTION PEN [Suspect]
  3. ACTRAPID [Concomitant]
     Route: 058

REACTIONS (4)
  - BLOOD GLUCOSE FLUCTUATION [None]
  - GASTROINTESTINAL CARCINOMA [None]
  - HYPOAESTHESIA [None]
  - SPINAL FRACTURE [None]
